FAERS Safety Report 8610034-9 (Version None)
Quarter: 2012Q3

REPORT INFORMATION
  Report Type: 
  Country: None (occurrence: None)
  Receive Date: 20120822
  Receipt Date: 20120813
  Transmission Date: 20120928
  Serious: Yes (Other)
  Sender: FDA-Public Use
  Company Number: CO-AMGEN-COLSP2012052162

PATIENT
  Age: 53 Year
  Sex: Female

DRUGS (1)
  1. ENBREL [Suspect]
     Indication: RHEUMATOID ARTHRITIS
     Dosage: 50 MG, WEEKLY
     Route: 058
     Dates: start: 20060101

REACTIONS (6)
  - IRRITABLE BOWEL SYNDROME [None]
  - HEADACHE [None]
  - POISONING [None]
  - VOMITING [None]
  - CHILLS [None]
  - INFECTION PARASITIC [None]
